FAERS Safety Report 8876031 (Version 2)
Quarter: 2012Q4

REPORT INFORMATION
  Report Type: 
  Country: ES (occurrence: ES)
  Receive Date: 20121030
  Receipt Date: 20121112
  Transmission Date: 20130627
  Serious: Yes (Hospitalization)
  Sender: FDA-Public Use
  Company Number: ES-ELI_LILLY_AND_COMPANY-ES201210006244

PATIENT
  Sex: Female
  Weight: 79 kg

DRUGS (6)
  1. FORSTEO [Suspect]
     Indication: OSTEOPOROSIS
     Dosage: 20 ug, qd
     Route: 058
     Dates: start: 20111015
  2. OPENVAS [Concomitant]
     Indication: HYPERTENSION
     Dosage: 40 mg, qd
     Route: 048
  3. VESICARE [Concomitant]
     Indication: URINARY INCONTINENCE
     Dosage: 5 mg, qd
     Route: 048
  4. PANTECTA [Concomitant]
     Dosage: 40 mg, qd
     Route: 048
  5. ZASTEN [Concomitant]
     Indication: ASTHMA
     Dosage: 2 mg, qd
     Route: 048
  6. EZETROL [Concomitant]
     Indication: BLOOD CHOLESTEROL INCREASED
     Dosage: 10 mg, UNK
     Route: 048

REACTIONS (1)
  - Appendicitis [Unknown]
